FAERS Safety Report 12968074 (Version 2)
Quarter: 2016Q4

REPORT INFORMATION
  Report Type: Spontaneous
  Country: BR (occurrence: BR)
  Receive Date: 20161123
  Receipt Date: 20161223
  Transmission Date: 20170207
  Serious: Yes (Other)
  Sender: FDA-Public Use
  Company Number: PHHY2016BR158132

PATIENT
  Age: 3 Year
  Sex: Male

DRUGS (1)
  1. AMOXICILLIN + CLAVULANATE POTASSIUM [Suspect]
     Active Substance: AMOXICILLIN\CLAVULANATE POTASSIUM
     Indication: PHARYNGITIS
     Dosage: 5 ML, TID
     Route: 048
     Dates: start: 20161110

REACTIONS (5)
  - Drug administration error [Unknown]
  - Rash [Recovered/Resolved]
  - Erythema [Unknown]
  - Abdominal pain upper [Recovered/Resolved]
  - Delirium [Recovered/Resolved]
